FAERS Safety Report 9688661 (Version 2)
Quarter: 2015Q2

REPORT INFORMATION
  Report Type: Spontaneous
  Country: US (occurrence: None)
  Receive Date: 20131113
  Receipt Date: 20150420
  Transmission Date: 20150821
  Serious: Yes (Hospitalization)
  Sender: FDA-Public Use
  Company Number: 1999721

PATIENT
  Age: 46 Year
  Sex: Male
  Weight: 106.05 kg

DRUGS (9)
  1. COUMADIN [Suspect]
     Active Substance: WARFARIN SODIUM
     Indication: DEEP VEIN THROMBOSIS
  2. RITUXAN [Suspect]
     Active Substance: RITUXIMAB
     Indication: CHRONIC LYMPHOCYTIC LEUKAEMIA
     Dosage: 375 MG/M2 MILLIGRAM(S)/SQ. METER,
     Dates: start: 20130429, end: 20130715
  3. ASA [Concomitant]
     Active Substance: ASPIRIN
  4. CYCLOPHOSPHAMIDE. [Suspect]
     Active Substance: CYCLOPHOSPHAMIDE
     Indication: CHRONIC LYMPHOCYTIC LEUKAEMIA
     Route: 042
     Dates: start: 20130503, end: 20130715
  5. FLUDARABINE PHOSPHATE. [Suspect]
     Active Substance: FLUDARABINE PHOSPHATE
     Indication: CHRONIC LYMPHOCYTIC LEUKAEMIA
     Dosage: 25 MG/M2 MILLIGRAM(S)/SQ. METER
     Route: 042
     Dates: start: 20130429, end: 20130715
  6. ETOPOSIDE. [Suspect]
     Active Substance: ETOPOSIDE
     Indication: CHRONIC LYMPHOCYTIC LEUKAEMIA
     Dosage: 50 MG/M2 MILLIGRAM(S)/SQ. METER (1 DAY)
     Route: 042
     Dates: start: 20130429, end: 20130715
  7. DOXORUBICIN [Suspect]
     Active Substance: DOXORUBICIN
     Indication: CHRONIC LYMPHOCYTIC LEUKAEMIA
     Dosage: 10 MG/M2 MILLIGRAM(S)/SQ.METER (1 DAY)
     Dates: start: 20130429, end: 20130715
  8. PREDNISONE. [Suspect]
     Active Substance: PREDNISONE
     Indication: CHRONIC LYMPHOCYTIC LEUKAEMIA
     Dosage: 6 MG/M2 MILLIGRAM(S)/SQ. METER (1 DAY)
     Route: 048
     Dates: start: 20130429, end: 20130715
  9. VINCRISTINE SULPHATE [Suspect]
     Active Substance: VINCRISTINE SULFATE
     Indication: CHRONIC LYMPHOCYTIC LEUKAEMIA
     Dosage: .4 MG/M2 MILLIGRAM(S)/SQ. METER. (1 DAY)
     Dates: start: 20130429, end: 20130715

REACTIONS (8)
  - Confusional state [None]
  - Subdural haematoma [None]
  - Lethargy [None]
  - Headache [None]
  - Nausea [None]
  - Vomiting [None]
  - Vision blurred [None]
  - Asthenia [None]

NARRATIVE: CASE EVENT DATE: 20130523
